FAERS Safety Report 10254629 (Version 1)
Quarter: 2014Q2

REPORT INFORMATION
  Report Type: Spontaneous
  Country: GB (occurrence: GB)
  Receive Date: 20140624
  Receipt Date: 20140624
  Transmission Date: 20141212
  Serious: Yes (Life-Threatening, Hospitalization)
  Sender: FDA-Public Use
  Company Number: GB-DRREDDYS-GER/UKI/14/0041251

PATIENT
  Age: 19 Year
  Sex: Male
  Weight: 117 kg

DRUGS (4)
  1. SERTRALINE [Suspect]
     Indication: DEPRESSION
     Route: 048
     Dates: start: 20140410
  2. SERTRALINE [Suspect]
     Route: 048
  3. SERTRALINE [Suspect]
     Route: 048
  4. SERTRALINE [Suspect]
     Route: 048
     Dates: start: 20140612

REACTIONS (2)
  - Intentional overdose [Not Recovered/Not Resolved]
  - Suicide attempt [Not Recovered/Not Resolved]
